FAERS Safety Report 9916457 (Version 1)
Quarter: 2014Q1

REPORT INFORMATION
  Report Type: Report from Study
  Country: BR (occurrence: BR)
  Receive Date: 20140221
  Receipt Date: 20140221
  Transmission Date: 20141002
  Serious: Yes (Death)
  Sender: FDA-Public Use
  Company Number: PHHY2014BR021192

PATIENT
  Sex: Male

DRUGS (2)
  1. EXELON PATCH [Suspect]
     Dosage: 10CM2/18 MG (9.5 MG/24 HOURS)
     Route: 062
  2. EXELON PATCH [Suspect]
     Dosage: 5 CM2/9 MG (4.6MG/24 HOURS)
     Route: 062

REACTIONS (1)
  - Death [Fatal]
